FAERS Safety Report 16519555 (Version 1)
Quarter: 2019Q3

REPORT INFORMATION
  Report Type: Spontaneous
  Country: US (occurrence: US)
  Receive Date: 20190522
  Receipt Date: 20190522
  Transmission Date: 20191004
  Serious: Yes (Hospitalization)
  Sender: FDA-Public Use
  Company Number: None

PATIENT
  Age: 75 Year
  Sex: Male
  Weight: 72.5 kg

DRUGS (15)
  1. CPAP [Concomitant]
     Active Substance: DEVICE
  2. TAMSULOSIN [Concomitant]
     Active Substance: TAMSULOSIN
  3. SYSTANE (HYPROMELLOSE 2910 (4000 MPA.S)) [Concomitant]
     Active Substance: HYPROMELLOSE 2910 (4000 MPA.S)
  4. CICLOPIROX. [Concomitant]
     Active Substance: CICLOPIROX
  5. RIVAROXABAN [Concomitant]
     Active Substance: RIVAROXABAN
  6. NORCO [Concomitant]
     Active Substance: ACETAMINOPHEN\HYDROCODONE BITARTRATE
  7. LACTULOSE. [Concomitant]
     Active Substance: LACTULOSE
  8. ONDANSETRON [Concomitant]
     Active Substance: ONDANSETRON
  9. DULOXETINE. [Concomitant]
     Active Substance: DULOXETINE
  10. PREDNISONE. [Concomitant]
     Active Substance: PREDNISONE
  11. FOLIC ACID. [Concomitant]
     Active Substance: FOLIC ACID
  12. TERBINAFINE. [Concomitant]
     Active Substance: TERBINAFINE
  13. ACETAMINOPHEN. [Concomitant]
     Active Substance: ACETAMINOPHEN
  14. KEYTRUDA [Suspect]
     Active Substance: PEMBROLIZUMAB
     Indication: LUNG ADENOCARCINOMA
     Dosage: ?          QUANTITY:200 MG MILLIGRAM(S);?
     Route: 042
     Dates: start: 20190307, end: 20190509
  15. COMPAZINE [Concomitant]
     Active Substance: PROCHLORPERAZINE MALEATE

REACTIONS (3)
  - Colitis [None]
  - Pancytopenia [None]
  - Leukopenia [None]

NARRATIVE: CASE EVENT DATE: 20190516
